FAERS Safety Report 26000567 (Version 1)
Quarter: 2025Q4

REPORT INFORMATION
  Report Type: Spontaneous
  Country: US (occurrence: None)
  Receive Date: 20251104
  Receipt Date: 20251104
  Transmission Date: 20260117
  Serious: Yes (Hospitalization)
  Sender: FDA-CTU
  Company Number: None

PATIENT
  Sex: Male
  Weight: 97.2 kg

DRUGS (3)
  1. WINREVAIR [Suspect]
     Active Substance: SOTATERCEPT-CSRK
     Indication: Pulmonary arterial hypertension
     Dosage: OTHER FREQUENCY : CONTINUOUS;?
     Route: 058
     Dates: start: 20251021
  2. REMODULIN [Suspect]
     Active Substance: TREPROSTINIL
  3. TADALAFIL [Concomitant]
     Active Substance: TADALAFIL

REACTIONS (6)
  - Catheter site haemorrhage [None]
  - Dizziness [None]
  - Nausea [None]
  - Vomiting [None]
  - Pain [None]
  - Catheter site pruritus [None]
